FAERS Safety Report 8368428-5 (Version None)
Quarter: 2012Q2

REPORT INFORMATION
  Report Type: 
  Country: None (occurrence: None)
  Receive Date: 20120517
  Receipt Date: 20120504
  Transmission Date: 20120825
  Serious: Yes (Hospitalization)
  Sender: FDA-Public Use
  Company Number: US-ELI_LILLY_AND_COMPANY-US201104002462

PATIENT
  Sex: Female

DRUGS (8)
  1. FORTEO [Suspect]
     Indication: OSTEOPOROSIS
     Dosage: 20 UG, QD
  2. FORTEO [Suspect]
     Dosage: 20 UG, QD
  3. FORTEO [Suspect]
     Dosage: 20 UG, QD
  4. FORTEO [Suspect]
     Dosage: 20 UG, QD
  5. FORTEO [Suspect]
     Dosage: 20 UG, QD
  6. ANTIHISTAMINES [Concomitant]
  7. CYMBALTA [Concomitant]
  8. FORTEO [Suspect]
     Dosage: 20 UG, QD

REACTIONS (12)
  - BONE PAIN [None]
  - FALL [None]
  - MUSCLE TIGHTNESS [None]
  - ABDOMINAL DISCOMFORT [None]
  - PAIN IN EXTREMITY [None]
  - NECK PAIN [None]
  - BACK INJURY [None]
  - ASTHMA [None]
  - CONTUSION [None]
  - CYSTITIS [None]
  - BALANCE DISORDER [None]
  - DIZZINESS [None]
